FAERS Safety Report 13580440 (Version 2)
Quarter: 2017Q2

REPORT INFORMATION
  Report Type: Spontaneous
  Country: CN (occurrence: CN)
  Receive Date: 20170525
  Receipt Date: 20170601
  Transmission Date: 20170830
  Serious: No
  Sender: FDA-Public Use
  Company Number: CN-ASTRAZENECA-2017SE42873

PATIENT
  Sex: Male

DRUGS (1)
  1. RHINOCORT [Suspect]
     Active Substance: BUDESONIDE
     Dosage: ONCE IN THE MORNING AND EVENING RESPECTIVELY
     Route: 045

REACTIONS (2)
  - Dermatitis contact [Recovered/Resolved]
  - Nasal congestion [Recovered/Resolved]
